FAERS Safety Report 4826423-4 (Version None)
Quarter: 2005Q4

REPORT INFORMATION
  Report Type: 
  Country: None (occurrence: None)
  Receive Date: 20051014
  Receipt Date: 20050816
  Transmission Date: 20060501
  Serious: No
  Sender: FDA-Public Use
  Company Number: 2005SP002377

PATIENT
  Age: 50 Year
  Sex: Female

DRUGS (1)
  1. LUNESTA [Suspect]
     Dosage: 2 MG;HS;ORAL
     Route: 047
     Dates: start: 20050101, end: 20050101

REACTIONS (4)
  - ABNORMAL DREAMS [None]
  - DISORIENTATION [None]
  - HALLUCINATION [None]
  - SOMNOLENCE [None]
